FAERS Safety Report 9476909 (Version 1)
Quarter: 2013Q3

REPORT INFORMATION
  Report Type: Spontaneous
  Country: US (occurrence: US)
  Receive Date: 20130826
  Receipt Date: 20130826
  Transmission Date: 20140515
  Serious: No
  Sender: FDA-Public Use
  Company Number: US-BAYER-2013-102274

PATIENT
  Age: 87 Year
  Sex: Female
  Weight: 54.42 kg

DRUGS (4)
  1. BAYER WOMEN^S LOW STRENGTH ASPIRIN REGIMEN [Suspect]
     Indication: CONSTIPATION
     Dosage: 1 DF, QD
     Route: 048
  2. PHILLIPS^ COLON HEALTH [Suspect]
     Indication: CONSTIPATION
     Dosage: 1 DF, QD
     Route: 048
     Dates: start: 2012
  3. ALEVE TABLET [Suspect]
     Indication: ARTHRITIS
     Dosage: 1 DF, BID
     Route: 048
  4. LISINOPRIL [Concomitant]

REACTIONS (2)
  - Urticaria [Not Recovered/Not Resolved]
  - Drug ineffective [None]
